FAERS Safety Report 25851813 (Version 1)
Quarter: 2025Q3

REPORT INFORMATION
  Report Type: Spontaneous
  Country: CN (occurrence: CN)
  Receive Date: 20250926
  Receipt Date: 20250926
  Transmission Date: 20251021
  Serious: Yes (Death)
  Sender: AMGEN
  Company Number: CN-AMGEN-CHNSP2025186157

PATIENT
  Age: 46 Year
  Sex: Male

DRUGS (1)
  1. XGEVA [Suspect]
     Active Substance: DENOSUMAB
     Indication: Bone giant cell tumour malignant
     Route: 065

REACTIONS (3)
  - Bone giant cell tumour malignant [Fatal]
  - Metastasis [Fatal]
  - Therapy non-responder [Unknown]
